FAERS Safety Report 24428283 (Version 1)
Quarter: 2024Q4

REPORT INFORMATION
  Report Type: Spontaneous
  Country: GB (occurrence: GB)
  Receive Date: 20241011
  Receipt Date: 20241011
  Transmission Date: 20250115
  Serious: Yes (Hospitalization, Other)
  Sender: GLAXOSMITHKLINE
  Company Number: None

PATIENT

DRUGS (1)
  1. SUMATRIPTAN [Suspect]
     Active Substance: SUMATRIPTAN
     Indication: Migraine
     Dosage: 50 MG (50MG WHEN REQUIRED. NO MORE THAN 2 A DAY)
     Route: 065
     Dates: end: 20241005

REACTIONS (4)
  - Loss of consciousness [Recovered/Resolved]
  - Dizziness [Recovering/Resolving]
  - Dizziness [Recovering/Resolving]
  - Nausea [Recovered/Resolved]

NARRATIVE: CASE EVENT DATE: 20241003
